FAERS Safety Report 15557775 (Version 1)
Quarter: 2018Q4

REPORT INFORMATION
  Report Type: Report from Study
  Country: JP (occurrence: JP)
  Receive Date: 20181027
  Receipt Date: 20181027
  Transmission Date: 20190205
  Serious: No
  Sender: FDA-Public Use
  Company Number: JP-IPSEN BIOPHARMACEUTICALS, INC.-2014-1928

PATIENT
  Age: 49 Year
  Sex: Male

DRUGS (13)
  1. LANTUS [Concomitant]
     Active Substance: INSULIN GLARGINE
     Route: 065
     Dates: end: 20130606
  2. GLACTIV [Concomitant]
     Active Substance: SITAGLIPTIN
     Dates: start: 20140315
  3. LANTUS [Concomitant]
     Active Substance: INSULIN GLARGINE
     Route: 065
     Dates: start: 20131122, end: 20151203
  4. METGLUCO [Concomitant]
     Active Substance: METFORMIN HYDROCHLORIDE
     Dates: end: 20140117
  5. METGLUCO [Concomitant]
     Active Substance: METFORMIN HYDROCHLORIDE
     Dates: start: 20150220
  6. SOMATULINE 120MG [Suspect]
     Active Substance: LANREOTIDE ACETATE
     Indication: ACROMEGALY
     Route: 058
     Dates: start: 20150710, end: 20160506
  7. BLOPRESS [Concomitant]
     Active Substance: CANDESARTAN CILEXETIL
     Dates: end: 20150220
  8. MEVALOTIN [Concomitant]
     Active Substance: PRAVASTATIN SODIUM
  9. AMLODIN [Concomitant]
     Active Substance: AMLODIPINE BESYLATE
     Dates: start: 20150220, end: 20151204
  10. SOMATULINE 90MG [Suspect]
     Active Substance: LANREOTIDE ACETATE
     Indication: ACROMEGALY
     Route: 058
     Dates: start: 20130215, end: 20150612
  11. LANTUS [Concomitant]
     Active Substance: INSULIN GLARGINE
     Route: 065
     Dates: start: 20130607, end: 20131121
  12. METGLUCO [Concomitant]
     Active Substance: METFORMIN HYDROCHLORIDE
     Dates: start: 20140118, end: 20150219
  13. JANUVIA [Concomitant]
     Active Substance: SITAGLIPTIN PHOSPHATE
     Dates: end: 20140314

REACTIONS (10)
  - Protein urine present [Recovered/Resolved]
  - Glycosylated haemoglobin increased [Recovering/Resolving]
  - Blood creatinine increased [Recovered/Resolved]
  - Cough [Recovered/Resolved]
  - Blood urea increased [Recovered/Resolved]
  - Ureterolithiasis [Recovered/Resolved]
  - Blood pressure increased [Recovered/Resolved]
  - Blood urine present [Recovered/Resolved]
  - Blood creatinine increased [Not Recovered/Not Resolved]
  - Protein urine present [Recovered/Resolved]

NARRATIVE: CASE EVENT DATE: 20130315
